FAERS Safety Report 7671534-1 (Version None)
Quarter: 2011Q3

REPORT INFORMATION
  Report Type: 
  Country: None (occurrence: None)
  Receive Date: 20110809
  Receipt Date: 20110809
  Transmission Date: 20111222
  Serious: Yes (Hospitalization)
  Sender: FDA-Public Use
  Company Number: None

PATIENT
  Sex: Female
  Weight: 75.3 kg

DRUGS (5)
  1. SPIRIVA [Concomitant]
     Route: 050
  2. ALTACE [Concomitant]
     Route: 048
  3. CARDIZEM CD [Concomitant]
     Route: 048
  4. PRADAXA [Suspect]
     Indication: ATRIAL FIBRILLATION
     Dosage: 150 MG
     Route: 048
  5. NITROGLYCERIN [Concomitant]
     Route: 060

REACTIONS (6)
  - DIARRHOEA [None]
  - DUODENAL ULCER [None]
  - GASTROINTESTINAL HAEMORRHAGE [None]
  - FAECES DISCOLOURED [None]
  - FLATULENCE [None]
  - ABDOMINAL PAIN [None]
